FAERS Safety Report 8535438-4 (Version None)
Quarter: 2012Q3

REPORT INFORMATION
  Report Type: 
  Country: None (occurrence: None)
  Receive Date: 20120725
  Receipt Date: 20120720
  Transmission Date: 20120928
  Serious: Yes (Hospitalization, Other)
  Sender: FDA-Public Use
  Company Number: US-AMGEN-USASP2012045406

PATIENT
  Age: 41 Year
  Sex: Female

DRUGS (1)
  1. ENBREL [Suspect]
     Indication: RHEUMATOID ARTHRITIS
     Dosage: 50 MG, QWK
     Dates: start: 20031021, end: 20120201

REACTIONS (7)
  - PLEURAL EFFUSION [None]
  - PAIN [None]
  - INJECTION SITE PAIN [None]
  - IDIOPATHIC THROMBOCYTOPENIC PURPURA [None]
  - PNEUMONIA [None]
  - PYREXIA [None]
  - CONTUSION [None]
